FAERS Safety Report 17443571 (Version 1)
Quarter: 2020Q1

REPORT INFORMATION
  Report Type: Spontaneous
  Country: US (occurrence: US)
  Receive Date: 20200220
  Receipt Date: 20200220
  Transmission Date: 20200409
  Serious: No
  Sender: FDA-Public Use
  Company Number: None

PATIENT
  Age: 38 Year
  Sex: Female
  Weight: 82.8 kg

DRUGS (3)
  1. ALPRAZXOLAM [Concomitant]
  2. ELURYNG [Suspect]
     Active Substance: ETHINYL ESTRADIOL\ETONOGESTREL
     Indication: CONTRACEPTION
     Route: 067
     Dates: start: 20191229, end: 20200216
  3. FLUOXETINE [Concomitant]
     Active Substance: FLUOXETINE HYDROCHLORIDE

REACTIONS (7)
  - Headache [None]
  - Hyperhidrosis [None]
  - Product substitution issue [None]
  - Weight increased [None]
  - Fatigue [None]
  - Abdominal distension [None]
  - Irritability [None]

NARRATIVE: CASE EVENT DATE: 20191229
